FAERS Safety Report 7874811-4 (Version None)
Quarter: 2011Q4

REPORT INFORMATION
  Report Type: 
  Country: None (occurrence: None)
  Receive Date: 20111031
  Receipt Date: 20111019
  Transmission Date: 20120403
  Serious: Yes (Congenital Anomaly)
  Sender: FDA-Public Use
  Company Number: FR-JNJFOC-20111010542

PATIENT
  Sex: Male
  Weight: 2.69 kg

DRUGS (3)
  1. TOPIRAMATE [Suspect]
     Indication: MATERNAL EXPOSURE DURING PREGNANCY
     Route: 064
     Dates: start: 20100626, end: 20110312
  2. DEPAKENE [Suspect]
     Indication: MATERNAL EXPOSURE DURING PREGNANCY
     Route: 064
     Dates: start: 20100626
  3. DEPAKENE [Suspect]
     Route: 064
     Dates: end: 20110312

REACTIONS (1)
  - HYPOSPADIAS [None]
